FAERS Safety Report 13817656 (Version 1)
Quarter: 2017Q3

REPORT INFORMATION
  Report Type: Spontaneous
  Country: US (occurrence: US)
  Receive Date: 20170731
  Receipt Date: 20170731
  Transmission Date: 20171127
  Serious: No
  Sender: FDA-Public Use
  Company Number: US-MORTON GROVE PHARMACEUTICALS, INC.-2023968

PATIENT
  Age: 3 Year
  Sex: Male
  Weight: 16.36 kg

DRUGS (1)
  1. SELENIUM SULFIDE. [Suspect]
     Active Substance: SELENIUM SULFIDE
     Indication: FUNGAL INFECTION
     Route: 061

REACTIONS (1)
  - Skin irritation [Recovering/Resolving]
